FAERS Safety Report 11240616 (Version 5)
Quarter: 2016Q1

REPORT INFORMATION
  Report Type: Spontaneous
  Country: US (occurrence: US)
  Receive Date: 20150706
  Receipt Date: 20160303
  Transmission Date: 20160525
  Serious: Yes (Other)
  Sender: FDA-Public Use
  Company Number: US-PFIZER INC-2015218207

PATIENT
  Age: 55 Year
  Sex: Male

DRUGS (4)
  1. LYRICA [Suspect]
     Active Substance: PREGABALIN
     Dosage: UNK
  2. KOMBIGLYZE XR [Concomitant]
     Active Substance: METFORMIN HYDROCHLORIDE\SAXAGLIPTIN HYDROCHLORIDE
     Dosage: [METFORMIN HCL 2.5 MG/SAXAGLIPTIN HYDROCHLORIDE 100 MG], 2X/DAY
  3. CELEBREX [Suspect]
     Active Substance: CELECOXIB
     Dosage: UNK
  4. CADUET [Suspect]
     Active Substance: AMLODIPINE BESYLATE\ATORVASTATIN CALCIUM
     Dosage: UNK

REACTIONS (10)
  - Diabetic neuropathy [Not Recovered/Not Resolved]
  - Nerve injury [Not Recovered/Not Resolved]
  - Haematopoietic neoplasm [Unknown]
  - Arthritis [Unknown]
  - Insomnia [Unknown]
  - Hypertension [Unknown]
  - Pain in extremity [Not Recovered/Not Resolved]
  - Peripheral coldness [Unknown]
  - Diabetes mellitus [Not Recovered/Not Resolved]
  - Arthralgia [Unknown]
